FAERS Safety Report 4512191-2 (Version None)
Quarter: 2004Q4

REPORT INFORMATION
  Report Type: 
  Country: None (occurrence: None)
  Receive Date: 20041129
  Receipt Date: 20041124
  Transmission Date: 20050328
  Serious: Yes (Other)
  Sender: FDA-Public Use
  Company Number: JP-ROCHE-386983

PATIENT
  Age: 71 Year
  Sex: Male

DRUGS (1)
  1. TORSEMIDE [Suspect]
     Indication: DRUG USE FOR UNKNOWN INDICATION
     Route: 048
     Dates: start: 20030515, end: 20030515

REACTIONS (1)
  - LIVER DISORDER [None]
